FAERS Safety Report 16581159 (Version 1)
Quarter: 2019Q3

REPORT INFORMATION
  Report Type: Spontaneous
  Country: US (occurrence: US)
  Receive Date: 20190716
  Receipt Date: 20190716
  Transmission Date: 20191004
  Serious: No
  Sender: FDA-Public Use
  Company Number: US-GALDERMA-US19017612

PATIENT
  Sex: Male

DRUGS (2)
  1. DIFFERIN GEL [Suspect]
     Active Substance: ADAPALENE
     Indication: SEBORRHOEIC KERATOSIS
     Dosage: 0.1%
     Route: 061
     Dates: start: 20190318
  2. SALICYLIC SHAMPOO [Concomitant]
     Indication: SEBORRHOEIC KERATOSIS
     Dates: start: 20190318

REACTIONS (1)
  - Product use in unapproved indication [Recovered/Resolved]

NARRATIVE: CASE EVENT DATE: 20190318
